FAERS Safety Report 6026334-5 (Version None)
Quarter: 2008Q4

REPORT INFORMATION
  Report Type: 
  Country: None (occurrence: None)
  Receive Date: 20081222
  Receipt Date: 20081120
  Transmission Date: 20090506
  Serious: No
  Sender: FDA-Public Use
  Company Number: US-WYE-H06941408

PATIENT
  Sex: Male
  Weight: 83.99 kg

DRUGS (1)
  1. PRISTIQ [Suspect]
     Dates: start: 20080101

REACTIONS (1)
  - TINNITUS [None]
